FAERS Safety Report 8031022-X (Version None)
Quarter: 2012Q1

REPORT INFORMATION
  Report Type: 
  Country: None (occurrence: None)
  Receive Date: 20120109
  Receipt Date: 20120104
  Transmission Date: 20120608
  Serious: Yes (Hospitalization)
  Sender: FDA-Public Use
  Company Number: PHEH2011US08483

PATIENT
  Sex: Female
  Weight: 58.5 kg

DRUGS (7)
  1. HYDROCHLOROTHIAZIDE [Concomitant]
     Dosage: 25 MG, UNK
  2. OMEPRAZOLE [Concomitant]
     Dosage: 20 MG, UNK
  3. GABAPENTIN [Concomitant]
     Dosage: 800 MG, TID
  4. FENTANYL [Concomitant]
     Dosage: UNK UKN, UNK
  5. LISINOPRIL [Suspect]
     Indication: BLOOD PRESSURE
     Dosage: 40 MG, DAILY
     Route: 048
  6. EXTAVIA [Suspect]
     Indication: MULTIPLE SCLEROSIS
     Dosage: 0.25 MG, QOD
     Route: 058
  7. FAMOTIDINE [Concomitant]
     Dosage: 40 MG, UNK

REACTIONS (2)
  - DEHYDRATION [None]
  - RENAL FAILURE ACUTE [None]
